FAERS Safety Report 5771252-0 (Version None)
Quarter: 2008Q2

REPORT INFORMATION
  Report Type: 
  Country: None (occurrence: None)
  Receive Date: 20080613
  Receipt Date: 20080606
  Transmission Date: 20081010
  Serious: Yes (Life-Threatening, Hospitalization)
  Sender: FDA-Public Use
  Company Number: GB-RANBAXY-2008RR-15766

PATIENT

DRUGS (3)
  1. ETODOLAC CAPSULES 200MG [Suspect]
     Indication: GOUT
     Dosage: 300 MG, BID
     Route: 048
     Dates: start: 20080422
  2. IBUPROFEN TABLETS [Suspect]
     Indication: NECK PAIN
     Dosage: 400 MG, BID
     Route: 048
     Dates: start: 20080417, end: 20080422
  3. OMEPRAZOLE [Concomitant]
     Indication: GASTROOESOPHAGEAL REFLUX DISEASE
     Dosage: 20 MG, QD
     Route: 048

REACTIONS (3)
  - DUODENAL ULCER PERFORATION [None]
  - LETHARGY [None]
  - MELAENA [None]
